FAERS Safety Report 10129920 (Version 1)
Quarter: 2014Q2

REPORT INFORMATION
  Report Type: Spontaneous
  Country: DE (occurrence: None)
  Receive Date: 20140424
  Receipt Date: 20140424
  Transmission Date: 20141212
  Serious: Yes (Hospitalization, Other)
  Sender: FDA-Public Use
  Company Number: 1401-0023

PATIENT
  Age: 95 Year
  Sex: Female

DRUGS (1)
  1. EYLEA [Suspect]
     Indication: AGE-RELATED MACULAR DEGENERATION
     Dosage: EVERY 3 MONTHS
     Route: 031
     Dates: start: 201312

REACTIONS (5)
  - Blindness transient [None]
  - General symptom [None]
  - Feeling abnormal [None]
  - Metamorphopsia [None]
  - Inappropriate schedule of drug administration [None]
